FAERS Safety Report 6681123-3 (Version None)
Quarter: 2010Q2

REPORT INFORMATION
  Report Type: 
  Country: None (occurrence: None)
  Receive Date: 20100414
  Receipt Date: 20100401
  Transmission Date: 20101027
  Serious: Yes (Hospitalization, Other)
  Sender: FDA-Public Use
  Company Number: US-GENZYME-MOZO-1000320

PATIENT
  Sex: Male
  Weight: 128.79 kg

DRUGS (6)
  1. MOZOBIL [Suspect]
     Indication: HAEMATOPOIETIC STEM CELL MOBILISATION
     Dosage: 240 MCG/KG, QD
     Dates: start: 20100324, end: 20100325
  2. MOZOBIL [Suspect]
     Indication: AMYLOIDOSIS
  3. MOZOBIL [Suspect]
     Indication: RENAL AMYLOIDOSIS
  4. NEUPOGEN [Suspect]
     Indication: HAEMATOPOIETIC STEM CELL MOBILISATION
     Dosage: 16 MCG/KG, QD
     Dates: start: 20100320, end: 20100325
  5. NEUPOGEN [Suspect]
     Indication: AMYLOIDOSIS
  6. NEUPOGEN [Suspect]
     Indication: RENAL AMYLOIDOSIS

REACTIONS (1)
  - SPLENIC RUPTURE [None]
